FAERS Safety Report 9521353 (Version 1)
Quarter: 2013Q1

REPORT INFORMATION
  Report Type: Spontaneous
  Country: US (occurrence: None)
  Receive Date: 20130305
  Receipt Date: 20130305
  Transmission Date: 20140127
  Serious: Yes (Other)
  Sender: FDA-Public Use
  Company Number: 163-21880-12072086

PATIENT
  Age: 64 Year
  Sex: Female
  Weight: 52.8 kg

DRUGS (1)
  1. REVLIMID [Suspect]
     Indication: PLASMA CELL MYELOMA
     Dosage: 10 MG, 21 IN 289 D, PO
     Route: 048
     Dates: start: 20120523, end: 20121108

REACTIONS (3)
  - Neutrophil count decreased [None]
  - Platelet count decreased [None]
  - Full blood count decreased [None]
